FAERS Safety Report 20147774 (Version 2)
Quarter: 2022Q1

REPORT INFORMATION
  Report Type: Spontaneous
  Country: JP (occurrence: JP)
  Receive Date: 20211203
  Receipt Date: 20220105
  Transmission Date: 20220424
  Serious: Yes (Other)
  Sender: FDA-Public Use
  Company Number: JP-BAXTER-2021BAX038301

PATIENT
  Age: 77 Year
  Sex: Female

DRUGS (5)
  1. CYCLOPHOSPHAMIDE [Suspect]
     Active Substance: CYCLOPHOSPHAMIDE
     Indication: Lymphoma
     Dosage: R-THPCOP THERAPY (68%)
     Route: 065
     Dates: start: 20200325
  2. PREDONINE [Concomitant]
     Active Substance: PREDNISOLONE
     Indication: Lymphoma
     Dosage: R-THPCOP THERAPY (91%)
     Route: 065
     Dates: start: 20200325
  3. RITUXIMAB [Concomitant]
     Active Substance: RITUXIMAB
     Indication: Lymphoma
     Dosage: GENETICAL RECOMBINATION, R-THPCOP THERAPY (91%)
     Route: 065
     Dates: start: 20200325
  4. VINCRISTINE SULFATE [Concomitant]
     Active Substance: VINCRISTINE SULFATE
     Indication: Lymphoma
     Dosage: R-THPCOP THERAPY (49%)
     Route: 065
     Dates: start: 20200325
  5. PIRARUBICIN HYDROCHLORIDE [Concomitant]
     Active Substance: PIRARUBICIN HYDROCHLORIDE
     Indication: Lymphoma
     Dosage: R-THPCOP THERAPY (68%)
     Route: 065
     Dates: start: 20200325

REACTIONS (1)
  - Small intestinal perforation [Recovering/Resolving]
